FAERS Safety Report 17632332 (Version 4)
Quarter: 2020Q2

REPORT INFORMATION
  Report Type: Report from Study
  Country: UA (occurrence: UA)
  Receive Date: 20200406
  Receipt Date: 20200611
  Transmission Date: 20200713
  Serious: Yes (Other)
  Sender: FDA-Public Use
  Company Number: UA-ASTRAZENECA-2020SE45686

PATIENT
  Age: 66 Year
  Sex: Male

DRUGS (21)
  1. DURVALUMAB. [Suspect]
     Active Substance: DURVALUMAB
     Indication: NON-SMALL CELL LUNG CANCER STAGE IV
     Route: 042
     Dates: start: 20200310, end: 20200310
  2. CARBOPLATIN. [Suspect]
     Active Substance: CARBOPLATIN
     Indication: NON-SMALL CELL LUNG CANCER STAGE IV
     Route: 042
     Dates: start: 20200217, end: 20200217
  3. PEMETREXED. [Suspect]
     Active Substance: PEMETREXED
     Indication: NON-SMALL CELL LUNG CANCER STAGE IV
     Route: 042
     Dates: start: 20200217, end: 20200217
  4. DEXALGIN [Concomitant]
     Indication: SPINAL PAIN
     Route: 048
     Dates: start: 201912
  5. SOLU-MEDROL [Concomitant]
     Active Substance: METHYLPREDNISOLONE SODIUM SUCCINATE
     Indication: DRUG-INDUCED LIVER INJURY
     Route: 042
     Dates: start: 20200413, end: 20200416
  6. SOLU-MEDROL [Concomitant]
     Active Substance: METHYLPREDNISOLONE SODIUM SUCCINATE
     Indication: GAMMA-GLUTAMYLTRANSFERASE INCREASED
     Route: 042
     Dates: start: 20200413, end: 20200416
  7. SOLU-MEDROL [Concomitant]
     Active Substance: METHYLPREDNISOLONE SODIUM SUCCINATE
     Indication: GAMMA-GLUTAMYLTRANSFERASE INCREASED
     Dosage: 375.0MG ONCE/SINGLE ADMINISTRATION
     Route: 042
     Dates: start: 20200417, end: 20200420
  8. PEMETREXED. [Suspect]
     Active Substance: PEMETREXED
     Indication: NON-SMALL CELL LUNG CANCER STAGE IV
     Route: 042
     Dates: start: 20200310, end: 20200310
  9. OSETRON [Concomitant]
     Active Substance: ONDANSETRON HYDROCHLORIDE
     Indication: PREMEDICATION
     Dosage: 8.0MG ONCE/SINGLE ADMINISTRATION
     Route: 042
     Dates: start: 20200217, end: 20200217
  10. SOLU-MEDROL [Concomitant]
     Active Substance: METHYLPREDNISOLONE SODIUM SUCCINATE
     Indication: DRUG-INDUCED LIVER INJURY
     Dosage: 375.0MG ONCE/SINGLE ADMINISTRATION
     Route: 042
     Dates: start: 20200417, end: 20200420
  11. SOLU-MEDROL [Concomitant]
     Active Substance: METHYLPREDNISOLONE SODIUM SUCCINATE
     Indication: DRUG-INDUCED LIVER INJURY
     Dosage: 312.5MG ONCE/SINGLE ADMINISTRATION
     Route: 042
     Dates: start: 20200421, end: 20200424
  12. FOLIC ACID. [Concomitant]
     Active Substance: FOLIC ACID
     Indication: PREMEDICATION
     Route: 048
     Dates: start: 20200210
  13. SOLU-MEDROL [Concomitant]
     Active Substance: METHYLPREDNISOLONE SODIUM SUCCINATE
     Indication: GAMMA-GLUTAMYLTRANSFERASE INCREASED
     Dosage: 281.5MG ONCE/SINGLE ADMINISTRATION
     Route: 042
     Dates: start: 20200425, end: 20200428
  14. CARBOPLATIN. [Suspect]
     Active Substance: CARBOPLATIN
     Indication: NON-SMALL CELL LUNG CANCER STAGE IV
     Route: 042
     Dates: start: 20200310, end: 20200310
  15. DEXALGIN [Concomitant]
     Indication: CHEST PAIN
     Route: 048
     Dates: start: 201912
  16. SOLU-MEDROL [Concomitant]
     Active Substance: METHYLPREDNISOLONE SODIUM SUCCINATE
     Indication: DRUG-INDUCED LIVER INJURY
     Route: 042
     Dates: start: 20200331, end: 20200412
  17. SOLU-MEDROL [Concomitant]
     Active Substance: METHYLPREDNISOLONE SODIUM SUCCINATE
     Indication: GAMMA-GLUTAMYLTRANSFERASE INCREASED
     Route: 042
     Dates: start: 20200331, end: 20200412
  18. DURVALUMAB. [Suspect]
     Active Substance: DURVALUMAB
     Indication: NON-SMALL CELL LUNG CANCER STAGE IV
     Route: 042
     Dates: start: 20200217, end: 20200217
  19. OSETRON [Concomitant]
     Active Substance: ONDANSETRON HYDROCHLORIDE
     Indication: PREMEDICATION
     Dosage: 8.0MG ONCE/SINGLE ADMINISTRATION
     Route: 042
     Dates: start: 20200310, end: 20200310
  20. SOLU-MEDROL [Concomitant]
     Active Substance: METHYLPREDNISOLONE SODIUM SUCCINATE
     Indication: GAMMA-GLUTAMYLTRANSFERASE INCREASED
     Dosage: 312.5MG ONCE/SINGLE ADMINISTRATION
     Route: 042
     Dates: start: 20200421, end: 20200424
  21. SOLU-MEDROL [Concomitant]
     Active Substance: METHYLPREDNISOLONE SODIUM SUCCINATE
     Indication: DRUG-INDUCED LIVER INJURY
     Dosage: 281.5MG ONCE/SINGLE ADMINISTRATION
     Route: 042
     Dates: start: 20200425, end: 20200428

REACTIONS (1)
  - Drug-induced liver injury [Recovered/Resolved]

NARRATIVE: CASE EVENT DATE: 20200331
